FAERS Safety Report 23539119 (Version 1)
Quarter: 2024Q1

REPORT INFORMATION
  Report Type: Spontaneous
  Country: US (occurrence: US)
  Receive Date: 20240219
  Receipt Date: 20240219
  Transmission Date: 20240410
  Serious: Yes (Other)
  Sender: FDA-Public Use
  Company Number: US-SA-SAC20240219000183

PATIENT
  Sex: Male

DRUGS (4)
  1. ELOCTATE [Suspect]
     Active Substance: EFMOROCTOCOG ALFA
     Indication: Factor VIII deficiency
     Dosage: 500 IU (+1-10%), PRN (ELOCTATE 484 UNITS/VIAL, 2 VIALS. INFUSE ONE 484 UNIT AS NEEDED FOR MILD OR MO
     Route: 042
  2. ELOCTATE [Suspect]
     Active Substance: EFMOROCTOCOG ALFA
     Indication: Factor VIII deficiency
     Dosage: 500 IU (+1-10%), PRN (ELOCTATE 484 UNITS/VIAL, 2 VIALS. INFUSE ONE 484 UNIT AS NEEDED FOR MILD OR MO
     Route: 042
  3. ELOCTATE [Suspect]
     Active Substance: EFMOROCTOCOG ALFA
     Dosage: 750 IU (4-10%), PRN (ELOCTATE 746 UNITS/VIAL, 1 VIAL, INFUSE ONE 746 UNIT VIAL AS NEEDED FOR SEVERE
     Route: 042
  4. ELOCTATE [Suspect]
     Active Substance: EFMOROCTOCOG ALFA
     Dosage: 750 IU (4-10%), PRN (ELOCTATE 746 UNITS/VIAL, 1 VIAL, INFUSE ONE 746 UNIT VIAL AS NEEDED FOR SEVERE
     Route: 042

REACTIONS (1)
  - Head injury [Recovered/Resolved]
